FAERS Safety Report 13372170 (Version 2)
Quarter: 2017Q1

REPORT INFORMATION
  Report Type: Spontaneous
  Country: US (occurrence: US)
  Receive Date: 20170327
  Receipt Date: 20170327
  Transmission Date: 20170429
  Serious: Yes (Other)
  Sender: FDA-Public Use
  Company Number: US-JNJCP-30000376704

PATIENT
  Age: 33 Year
  Sex: Female
  Weight: 113 kg

DRUGS (2)
  1. MEDICATION UNSPECIFIED [Concomitant]
     Indication: DEPRESSION
     Dosage: ONCE A DAY SINCE SIX TO SEVEN MONTHS
  2. AVEENO CLEAR COMPLEXION DAILY CLEANSING [Suspect]
     Active Substance: SALICYLIC ACID
     Indication: ACNE
     Dosage: ONE PADS, ONCE
     Route: 061
     Dates: start: 20170305, end: 20170305

REACTIONS (6)
  - Application site pain [Recovering/Resolving]
  - Application site erythema [Recovered/Resolved]
  - Application site pruritus [Recovered/Resolved]
  - Application site pain [Recovered/Resolved]
  - Application site swelling [Recovered/Resolved]
  - Application site exfoliation [Recovering/Resolving]

NARRATIVE: CASE EVENT DATE: 20170305
